FAERS Safety Report 16297960 (Version 2)
Quarter: 2019Q2

REPORT INFORMATION
  Report Type: Report from Study
  Country: GB (occurrence: GB)
  Receive Date: 20190510
  Receipt Date: 20190604
  Transmission Date: 20190711
  Serious: Yes (Hospitalization, Other)
  Sender: FDA-Public Use
  Company Number: GB-ASPEN-GLO2019GB004429

PATIENT
  Age: 48 Year
  Sex: Male

DRUGS (8)
  1. ZANAMIVIR [Concomitant]
     Active Substance: ZANAMIVIR
     Indication: PRODUCT USED FOR UNKNOWN INDICATION
     Route: 041
  2. CO-AMOXICLAV [Concomitant]
     Active Substance: AMOXICILLIN\CLAVULANATE POTASSIUM
     Indication: INFLUENZA
     Dosage: DOSE NOT PROVIDED
     Route: 041
  3. G-CSF [Concomitant]
     Active Substance: GRANULOCYTE COLONY-STIMULATING FACTOR NOS
     Indication: NEUTROPHIL COUNT DECREASED
     Dosage: DOSE NOT PROVIDED
     Route: 065
  4. DEXAMETHASONE. [Suspect]
     Active Substance: DEXAMETHASONE
     Dosage: DOSE NOT PROVIDED
     Route: 048
  5. POMALIDOMIDE [Suspect]
     Active Substance: POMALIDOMIDE
     Indication: PLASMA CELL MYELOMA
     Dosage: 84 MG, 1 DOSE 28 DAYS
     Route: 048
     Dates: start: 20190204, end: 20190208
  6. POMALIDOMIDE [Suspect]
     Active Substance: POMALIDOMIDE
     Dosage: 84 MG
     Route: 048
     Dates: start: 20190107, end: 20190127
  7. DEXAMETHASONE. [Suspect]
     Active Substance: DEXAMETHASONE
     Indication: PLASMA CELL MYELOMA
     Dosage: 20 MG, 1 DOSE WEEKLY
     Route: 048
     Dates: start: 20190107, end: 20190204
  8. TAZOCIN [Concomitant]
     Active Substance: PIPERACILLIN SODIUM\TAZOBACTAM SODIUM
     Indication: PRODUCT USED FOR UNKNOWN INDICATION
     Route: 041

REACTIONS (2)
  - Neutropenia [Recovered/Resolved]
  - Influenza [Recovered/Resolved]

NARRATIVE: CASE EVENT DATE: 20190208
